FAERS Safety Report 8460578-8 (Version None)
Quarter: 2012Q2

REPORT INFORMATION
  Report Type: 
  Country: None (occurrence: None)
  Receive Date: 20120622
  Receipt Date: 20120416
  Transmission Date: 20120825
  Serious: No
  Sender: FDA-Public Use
  Company Number: US-ASTRAZENECA-2012SE24801

PATIENT
  Age: 70 Year
  Sex: Male
  Weight: 83.5 kg

DRUGS (3)
  1. EFFIENT [Concomitant]
  2. ASPIRIN [Concomitant]
  3. BRILINTA [Suspect]
     Indication: STENT PLACEMENT
     Route: 048
     Dates: start: 20120302, end: 20120312

REACTIONS (2)
  - DRUG HYPERSENSITIVITY [None]
  - DYSPNOEA [None]
